FAERS Safety Report 7080123-1 (Version None)
Quarter: 2010Q4

REPORT INFORMATION
  Report Type: 
  Country: None (occurrence: None)
  Receive Date: 20101102
  Receipt Date: 20100901
  Transmission Date: 20110411
  Serious: Yes (Other)
  Sender: FDA-Public Use
  Company Number: BR-SANOFI-AVENTIS-2010SA052832

PATIENT
  Sex: Female
  Weight: 50 kg

DRUGS (3)
  1. LANTUS [Suspect]
     Route: 058
     Dates: start: 20040101, end: 20100830
  2. AUTOPEN 24 [Suspect]
     Dates: end: 20100830
  3. HUMALOG [Concomitant]
     Route: 058
     Dates: start: 20040101

REACTIONS (7)
  - FATIGUE [None]
  - HEADACHE [None]
  - HUNGER [None]
  - HYPERGLYCAEMIA [None]
  - JOINT STIFFNESS [None]
  - PNEUMONIA [None]
  - THIRST [None]
